FAERS Safety Report 19025304 (Version 1)
Quarter: 2021Q1

REPORT INFORMATION
  Report Type: Spontaneous
  Country: US (occurrence: US)
  Receive Date: 20210316
  Receipt Date: 20210316
  Transmission Date: 20210420
  Serious: Yes (Life-Threatening, Hospitalization)
  Sender: FDA-Public Use
  Company Number: None

PATIENT
  Age: 60 Year
  Sex: Male
  Weight: 60.6 kg

DRUGS (1)
  1. FORTAMET [Suspect]
     Active Substance: METFORMIN HYDROCHLORIDE
     Indication: DIABETES MELLITUS
     Route: 048
     Dates: start: 20180316, end: 20180827

REACTIONS (3)
  - Gastritis [None]
  - Diabetic ketoacidosis [None]
  - Lactic acidosis [None]

NARRATIVE: CASE EVENT DATE: 20180827
